FAERS Safety Report 14843327 (Version 5)
Quarter: 2018Q2

REPORT INFORMATION
  Report Type: Spontaneous
  Country: BR (occurrence: BR)
  Receive Date: 20180503
  Receipt Date: 20180619
  Transmission Date: 20180711
  Serious: Yes (Hospitalization, Other)
  Sender: FDA-Public Use
  Company Number: BR-BIOMARINAP-BR-2018-118091

PATIENT
  Sex: Female
  Weight: 20.5 kg

DRUGS (5)
  1. FUROSEMIDE. [Concomitant]
     Active Substance: FUROSEMIDE
     Indication: CARDIAC MURMUR
     Dosage: 2 ML, BID
     Dates: start: 2017
  2. FUROSEMIDE. [Concomitant]
     Active Substance: FUROSEMIDE
     Indication: MITRAL VALVE DISEASE
  3. NAGLAZYME [Suspect]
     Active Substance: GALSULFASE
     Indication: MUCOPOLYSACCHARIDOSIS VI
     Dosage: UNK UNK, QW
     Route: 042
     Dates: start: 20161123
  4. CAPTOPRIL. [Concomitant]
     Active Substance: CAPTOPRIL
     Indication: MITRAL VALVE DISEASE
  5. CAPTOPRIL. [Concomitant]
     Active Substance: CAPTOPRIL
     Indication: CARDIAC MURMUR
     Dosage: 1 ML, TID
     Dates: start: 2017

REACTIONS (5)
  - Hydrocephalus [Unknown]
  - Headache [Recovering/Resolving]
  - Spinal cord compression [Unknown]
  - Vomiting [Recovering/Resolving]
  - Pain in extremity [Unknown]
